FAERS Safety Report 9198445 (Version 1)
Quarter: 2013Q1

REPORT INFORMATION
  Report Type: Spontaneous
  Country: US (occurrence: None)
  Receive Date: 20130327
  Receipt Date: 20130327
  Transmission Date: 20140127
  Serious: Yes (Other)
  Sender: FDA-Public Use
  Company Number: None

PATIENT
  Sex: Female
  Weight: 51 kg

DRUGS (25)
  1. NEOMYCIN [Suspect]
     Indication: GASTROINTESTINAL DISORDER
     Route: 048
     Dates: start: 20130318, end: 20130320
  2. PIPERACILLIN-TAZOBACTAM IN DEXTROSE [Concomitant]
  3. LACTULOSE [Concomitant]
  4. SIMETHICONE [Concomitant]
  5. SODIUM BICARBONATE [Concomitant]
  6. SPIRO NOLACTONE [Concomitant]
  7. HYDROCHLOROTHIAZIDE [Concomitant]
  8. VITAMIN E 200 [Concomitant]
  9. CALCIUM CARBONATE [Concomitant]
  10. VITAMIN A [Concomitant]
  11. AQUADEKS [Concomitant]
  12. PANTOPRAZOLE -PROTONIX- IN NACL [Concomitant]
  13. CHOLECALCIFEROL [Concomitant]
  14. DEXTROSE [Concomitant]
  15. NACL [Concomitant]
  16. CISATRACURIUM [Concomitant]
  17. KETAMINE [Concomitant]
  18. MIDAZOLAM [Concomitant]
  19. GLYCOPYRROLATE [Concomitant]
  20. FENTANYL [Concomitant]
  21. PROPOFOL [Concomitant]
  22. HYOSCYAMINE [Concomitant]
  23. ZINC OXIDE [Concomitant]
  24. ONDANSETRON [Concomitant]
  25. EMOLLIENT [Concomitant]
     Dosage: 750 MG Q 6HRS,PO
     Dates: start: 20130318, end: 20130320

REACTIONS (1)
  - Blood creatinine increased [None]
